FAERS Safety Report 5330181-7 (Version None)
Quarter: 2007Q2

REPORT INFORMATION
  Report Type: 
  Country: None (occurrence: None)
  Receive Date: 20070515
  Receipt Date: 20070505
  Transmission Date: 20071010
  Serious: Yes (Other)
  Sender: FDA-Public Use
  Company Number: 430040K07USA

PATIENT
  Age: 45 Year
  Sex: Female

DRUGS (8)
  1. NOVANTRONE [Suspect]
     Indication: MULTIPLE SCLEROSIS
     Dosage: NOT REPORTED, 1 IN 3 MONTHS, INTRAVENOUS (NOT OTHERWISE SPECIFIED)
     Route: 042
     Dates: start: 20060220
  2. KEPPRA [Concomitant]
  3. TOPAMAX [Concomitant]
  4. SEROQUEL [Concomitant]
  5. ZANAFLEX [Concomitant]
  6. BACLOFEN [Concomitant]
  7. NEURONTIN [Concomitant]
  8. LYRICA [Concomitant]

REACTIONS (2)
  - GALLBLADDER DISORDER [None]
  - PAIN [None]
